FAERS Safety Report 23292087 (Version 1)
Quarter: 2023Q4

REPORT INFORMATION
  Report Type: Spontaneous
  Country: IT (occurrence: IT)
  Receive Date: 20231213
  Receipt Date: 20231213
  Transmission Date: 20240110
  Serious: Yes (Other)
  Sender: FDA-Public Use
  Company Number: None

PATIENT
  Sex: Female

DRUGS (2)
  1. TRAMETINIB [Suspect]
     Active Substance: TRAMETINIB
     Indication: Product used for unknown indication
     Dosage: 0.5 MG (0.5 MG X2 DIE. DOSE RIDOTTA AL 50% PER TOSSICITA)
     Route: 065
     Dates: start: 20201111, end: 20231202
  2. DABRAFENIB [Suspect]
     Active Substance: DABRAFENIB
     Indication: Malignant glioma
     Dosage: 150 MG (75 MG X2 /DIE, DOSAGGIO RIDOTTO AL 50% PER TOSSICITA)
     Route: 065
     Dates: start: 20201111, end: 20231202

REACTIONS (1)
  - Erythema nodosum [Not Recovered/Not Resolved]

NARRATIVE: CASE EVENT DATE: 20201111
